FAERS Safety Report 12209805 (Version 1)
Quarter: 2016Q1

REPORT INFORMATION
  Report Type: Spontaneous
  Country: US (occurrence: US)
  Receive Date: 20160325
  Receipt Date: 20160325
  Transmission Date: 20160526
  Serious: Yes (Other)
  Sender: FDA-Public Use
  Company Number: US-ROCHE-1731318

PATIENT

DRUGS (3)
  1. EYLEA [Suspect]
     Active Substance: AFLIBERCEPT
     Indication: VENOUS OCCLUSION
     Route: 065
  2. LUCENTIS [Suspect]
     Active Substance: RANIBIZUMAB
     Indication: GLAUCOMA
     Route: 065
  3. EYLEA [Suspect]
     Active Substance: AFLIBERCEPT
     Indication: CYSTOID MACULAR OEDEMA

REACTIONS (3)
  - Eye oedema [Unknown]
  - Glaucoma [Unknown]
  - Drug ineffective [Unknown]
